APPROVED DRUG PRODUCT: CHLORHEXIDINE GLUCONATE
Active Ingredient: CHLORHEXIDINE GLUCONATE
Strength: 4%
Dosage Form/Route: SPONGE;TOPICAL
Application: A072525 | Product #001
Applicant: BECTON DICKINSON AND CO
Approved: Oct 24, 1989 | RLD: No | RS: Yes | Type: OTC